FAERS Safety Report 18582597 (Version 1)
Quarter: 2020Q4

REPORT INFORMATION
  Report Type: Spontaneous
  Country: BE (occurrence: BE)
  Receive Date: 20201205
  Receipt Date: 20201205
  Transmission Date: 20210114
  Serious: Yes (Hospitalization, Other)
  Sender: FDA-Public Use
  Company Number: BE-ACCORD-209079

PATIENT
  Age: 12 Year
  Sex: Male

DRUGS (5)
  1. QUETIAPINE. [Suspect]
     Active Substance: QUETIAPINE
     Indication: ATTENTION DEFICIT HYPERACTIVITY DISORDER
     Dosage: EXTENDED RELEASE STARTING AND GRADUALLY INCREASING THE DOSE TITRATED UP, GRADUALLY PHASING OUT
  2. RISPERIDONE. [Concomitant]
     Active Substance: RISPERIDONE
     Indication: AUTISM SPECTRUM DISORDER
  3. METHYLPHENIDATE. [Concomitant]
     Active Substance: METHYLPHENIDATE
     Indication: ATTENTION DEFICIT HYPERACTIVITY DISORDER
  4. PIPAMPERONE/PIPAMPERONE HYDROCHLORIDE [Concomitant]
     Active Substance: PIPAMPERONE HYDROCHLORIDE
     Indication: AUTISM SPECTRUM DISORDER
  5. ARIPIPRAZOLE. [Suspect]
     Active Substance: ARIPIPRAZOLE
     Indication: AUTISM SPECTRUM DISORDER
     Dosage: PHASED OUT ARIPIPRAZOLE FROM 15 MG UNTIL COMPLETE DISCONTINUATION

REACTIONS (7)
  - Off label use [Unknown]
  - Agitation [Recovering/Resolving]
  - Loss of personal independence in daily activities [Recovering/Resolving]
  - Withdrawal syndrome [Recovering/Resolving]
  - Choreoathetosis [Recovering/Resolving]
  - Tardive dyskinesia [Recovering/Resolving]
  - Anxiety [Recovering/Resolving]
